FAERS Safety Report 10067196 (Version 1)
Quarter: 2014Q2

REPORT INFORMATION
  Report Type: Spontaneous
  Country: US (occurrence: None)
  Receive Date: 20140408
  Receipt Date: 20140408
  Transmission Date: 20141212
  Serious: Yes (Life-Threatening, Hospitalization)
  Sender: FDA-Public Use
  Company Number: None

PATIENT
  Age: 52 Year
  Sex: Female

DRUGS (1)
  1. LIDOCAINE [Suspect]
     Indication: LOCAL ANAESTHESIA
     Dosage: APPLIE TO A SURFACE, USUALLY THE SKIN

REACTIONS (6)
  - Muscle twitching [None]
  - Palpitations [None]
  - Dizziness [None]
  - Throat tightness [None]
  - Syncope [None]
  - Loss of consciousness [None]
